FAERS Safety Report 4840940-2 (Version None)
Quarter: 2005Q4

REPORT INFORMATION
  Report Type: 
  Country: None (occurrence: None)
  Receive Date: 20051130
  Receipt Date: 20050720
  Transmission Date: 20060501
  Serious: No
  Sender: FDA-Public Use
  Company Number: US-BRISTOL-MYERS SQUIBB COMPANY-13045083

PATIENT
  Age: 45 Year
  Sex: Female
  Weight: 127 kg

DRUGS (8)
  1. ABILIFY [Suspect]
     Indication: MAJOR DEPRESSION
     Route: 048
     Dates: start: 20050615, end: 20050713
  2. ABILIFY [Suspect]
     Indication: PSYCHOTIC DISORDER
     Route: 048
     Dates: start: 20050615, end: 20050713
  3. PAXIL [Concomitant]
  4. LIPITOR [Concomitant]
  5. IMITREX [Concomitant]
  6. HYDROCODONE + ACETAMINOPHEN [Concomitant]
     Dosage: DOSE VALUE:  5/500
  7. VERAPAMIL [Concomitant]
  8. ZANTAC [Concomitant]

REACTIONS (1)
  - BLISTER [None]
